FAERS Safety Report 10368370 (Version 1)
Quarter: 2014Q3

REPORT INFORMATION
  Report Type: Spontaneous
  Country: US (occurrence: None)
  Receive Date: 20140806
  Receipt Date: 20140806
  Transmission Date: 20150326
  Serious: Yes (Congenital Anomaly)
  Sender: FDA-Public Use
  Company Number: None

PATIENT
  Age: 62 Year
  Sex: Female
  Weight: 81.19 kg

DRUGS (1)
  1. PANTOPRAZOLE [Suspect]
     Active Substance: PANTOPRAZOLE SODIUM
     Indication: UPPER GASTROINTESTINAL HAEMORRHAGE
     Dosage: 80 MG X1 IV JUN2014 THEN IV DRIP 8 MG/HR X 24-48HR
     Route: 042
     Dates: start: 201406

REACTIONS (1)
  - Tinnitus [None]

NARRATIVE: CASE EVENT DATE: 20140110
